FAERS Safety Report 10061616 (Version 2)
Quarter: 2014Q2

REPORT INFORMATION
  Report Type: Spontaneous
  Country: IT (occurrence: IT)
  Receive Date: 20140407
  Receipt Date: 20140407
  Transmission Date: 20141212
  Serious: No
  Sender: FDA-Public Use
  Company Number: IT-ROCHE-1350597

PATIENT
  Age: 58 Year
  Sex: Female

DRUGS (10)
  1. TRASTUZUMAB [Suspect]
     Indication: BREAST CANCER METASTATIC
     Dosage: FOR 1 YEAR
     Route: 065
  2. TRASTUZUMAB [Suspect]
     Dosage: LOADING DOSE
     Route: 065
     Dates: start: 201202
  3. TRASTUZUMAB [Suspect]
     Route: 065
     Dates: start: 201202
  4. CAPECITABINE [Suspect]
     Indication: BREAST CANCER METASTATIC
     Dosage: FOR 14 OF EVERY 28 DAYS.
     Route: 065
     Dates: start: 201301
  5. LAPATINIB [Suspect]
     Indication: BREAST CANCER METASTATIC
     Dosage: FOR 14 OF EVERY 28 DAYS
     Route: 065
     Dates: start: 201301
  6. EXEMESTANE [Concomitant]
     Indication: BREAST CANCER METASTATIC
  7. VINORELBINE [Concomitant]
     Indication: BREAST CANCER METASTATIC
     Dosage: 25 NG/M2 DAY 1 AND 8 IN A 3-WEEKLY
     Route: 065
  8. EPIRUBICIN [Concomitant]
     Indication: BREAST CANCER
  9. CYCLOPHOSPHAMIDE [Concomitant]
     Indication: BREAST CANCER
  10. PACLITAXEL [Concomitant]
     Indication: BREAST CANCER

REACTIONS (2)
  - Drug resistance [Unknown]
  - Fatigue [Unknown]
